FAERS Safety Report 20664884 (Version 2)
Quarter: 2022Q2

REPORT INFORMATION
  Report Type: Report from Study
  Country: CA (occurrence: CA)
  Receive Date: 20220401
  Receipt Date: 20220405
  Transmission Date: 20220721
  Serious: Yes (Other)
  Sender: FDA-Public Use
  Company Number: CA-HLS-202200659

PATIENT
  Sex: Male

DRUGS (1)
  1. CLOZARIL [Suspect]
     Active Substance: CLOZAPINE
     Indication: Product used for unknown indication
     Route: 048
     Dates: start: 20210409

REACTIONS (5)
  - C-reactive protein increased [Unknown]
  - Troponin increased [Unknown]
  - Hepatic enzyme abnormal [Unknown]
  - Basedow^s disease [Unknown]
  - Electrocardiogram ST segment elevation [Unknown]
